FAERS Safety Report 7767284-3 (Version None)
Quarter: 2011Q3

REPORT INFORMATION
  Report Type: 
  Country: None (occurrence: None)
  Receive Date: 20110922
  Receipt Date: 20110526
  Transmission Date: 20111222
  Serious: No
  Sender: FDA-Public Use
  Company Number: US-ASTRAZENECA-2011SE32364

PATIENT
  Sex: Female
  Weight: 108.9 kg

DRUGS (4)
  1. SEROQUEL [Suspect]
     Indication: DEPRESSION
     Route: 048
  2. CELEXA [Concomitant]
  3. ALLOPURINOL [Concomitant]
  4. LISINOPRIL [Concomitant]

REACTIONS (4)
  - HEADACHE [None]
  - WEIGHT INCREASED [None]
  - INSOMNIA [None]
  - DRUG DOSE OMISSION [None]
